APPROVED DRUG PRODUCT: QUINAPRIL HYDROCHLORIDE AND HYDROCHLOROTHIAZIDE
Active Ingredient: HYDROCHLOROTHIAZIDE; QUINAPRIL HYDROCHLORIDE
Strength: 12.5MG;EQ 20MG BASE
Dosage Form/Route: TABLET;ORAL
Application: A078450 | Product #002 | TE Code: AB
Applicant: AUROBINDO PHARMA LTD
Approved: Aug 24, 2007 | RLD: No | RS: No | Type: RX